FAERS Safety Report 20767158 (Version 1)
Quarter: 2022Q2

REPORT INFORMATION
  Report Type: Spontaneous
  Country: GB (occurrence: GB)
  Receive Date: 20220429
  Receipt Date: 20220429
  Transmission Date: 20220721
  Serious: Yes (Other)
  Sender: FDA-Public Use
  Company Number: GB-ORGANON-O2204GBR002129

PATIENT
  Sex: Male

DRUGS (2)
  1. EBASTINE [Suspect]
     Active Substance: EBASTINE
     Dosage: FORMULATION: SYRUP
  2. SINGULAIR [Suspect]
     Active Substance: MONTELUKAST SODIUM
     Dosage: UNK
     Route: 048

REACTIONS (1)
  - Coeliac disease [Unknown]
